FAERS Safety Report 7288412-2 (Version None)
Quarter: 2011Q1

REPORT INFORMATION
  Report Type: 
  Country: None (occurrence: None)
  Receive Date: 20110211
  Receipt Date: 20110209
  Transmission Date: 20110831
  Serious: Yes (Death, Hospitalization)
  Sender: FDA-Public Use
  Company Number: A0890612A

PATIENT
  Sex: Male

DRUGS (1)
  1. ADVAIR [Suspect]
     Route: 055
     Dates: start: 20060101

REACTIONS (2)
  - SEPSIS [None]
  - ADVERSE EVENT [None]
